FAERS Safety Report 16528749 (Version 2)
Quarter: 2019Q3

REPORT INFORMATION
  Report Type: Spontaneous
  Country: HU (occurrence: HU)
  Receive Date: 20190703
  Receipt Date: 20190919
  Transmission Date: 20191004
  Serious: Yes (Hospitalization)
  Sender: FDA-Public Use
  Company Number: HU-PFIZER INC-2019276873

PATIENT
  Age: 3 Day
  Sex: Male
  Weight: .79 kg

DRUGS (1)
  1. SILDENAFIL CITRATE. [Suspect]
     Active Substance: SILDENAFIL CITRATE
     Dosage: UNK

REACTIONS (4)
  - Developmental delay [Recovered/Resolved]
  - Poor feeding infant [Recovered/Resolved]
  - Skin discolouration [Unknown]
  - Infantile vomiting [Recovered/Resolved]
